FAERS Safety Report 6287642-6 (Version None)
Quarter: 2009Q4

REPORT INFORMATION
  Report Type: 
  Country: None (occurrence: None)
  Receive Date: 20090727
  Receipt Date: 20090727
  Transmission Date: 20100525
  Serious: No
  Sender: FDA-Public Use
  Company Number: None

PATIENT
  Age: 61 Year
  Sex: Female

DRUGS (5)
  1. BACLOFEN [Suspect]
     Dosage: }5MG TID
     Dates: start: 20070801, end: 20071125
  2. ZETIA [Concomitant]
  3. LIPITOR [Concomitant]
  4. ^CELESTIAL SEASONINGS^ TEA - CHAMOMILE, SPEARMINT, LEMON GRASS, TILIA [Concomitant]
  5. ^GOOD HERBS ORIGINAL^ TEA - ROOBOIS, ROSEHIPS, CHAMOMILE, CINNAMON, LE [Concomitant]

REACTIONS (5)
  - ANTINUCLEAR ANTIBODY POSITIVE [None]
  - DRUG TOXICITY [None]
  - GASTROOESOPHAGEAL REFLUX DISEASE [None]
  - LIVER INJURY [None]
  - NAUSEA [None]
